FAERS Safety Report 21345768 (Version 1)
Quarter: 2022Q3

REPORT INFORMATION
  Report Type: Report from Study
  Country: DE (occurrence: US)
  Receive Date: 20220916
  Receipt Date: 20220916
  Transmission Date: 20221026
  Serious: Yes (Life-Threatening, Hospitalization, Other)
  Sender: FDA-Public Use
  Company Number: DE-TEVA-2022-DE-2075092

PATIENT
  Age: 62 Year
  Sex: Male

DRUGS (65)
  1. ACETYLCYSTEINE [Suspect]
     Active Substance: ACETYLCYSTEINE
     Indication: Productive cough
     Dosage: 600 MILLIGRAM DAILY; DAILY DOSE: 600 MG MILLIGRAM(S) EVERY DAY, DURATION-14 DAYS
     Route: 065
     Dates: start: 20050629, end: 20050712
  2. AMBROXOL [Suspect]
     Active Substance: AMBROXOL
     Indication: Unevaluable event
     Dosage: 28 GTT DAILY; DAILY DOSE: 28 GTT DROP(S) EVERY DAY, DURATION 18 DAYS
     Route: 065
     Dates: start: 20050701, end: 20050718
  3. FUROSEMIDE [Suspect]
     Active Substance: FUROSEMIDE
     Indication: Hypertension
     Dosage: 40 MILLIGRAM DAILY; DAILY DOSE: 40 MG MILLIGRAM(S) EVERY DAY, END DATE: NOT ASKED
     Route: 065
     Dates: start: 20050707
  4. OMEPRAZOLE [Suspect]
     Active Substance: OMEPRAZOLE
     Indication: Prophylaxis
     Dosage: 20 MILLIGRAM DAILY; DRUG NAME: GASTRACID. DOSAGE REGIMEN: 0-0-1, END DATE: NOT ASKED
     Route: 065
     Dates: start: 20050718
  5. OMEPRAZOLE [Suspect]
     Active Substance: OMEPRAZOLE
     Indication: Prophylaxis against gastrointestinal ulcer
     Dosage: 20 MG, END DATE: NOT ASKED
     Route: 065
     Dates: start: 20050719
  6. HEPARIN SODIUM [Suspect]
     Active Substance: HEPARIN SODIUM
     Indication: Thrombosis prophylaxis
     Dosage: 25000 IU (INTERNATIONAL UNIT) DAILY; DOSAGE REGIMEN: 1-0-0, DURATION 13 DAYS
     Route: 065
     Dates: start: 20050627, end: 20050709
  7. OXAZEPAM [Suspect]
     Active Substance: OXAZEPAM
     Indication: Sedation
     Dosage: NOT STATED, DURATION-1 DAYS
     Route: 065
     Dates: start: 20050708, end: 20050708
  8. PHENPROCOUMON [Suspect]
     Active Substance: PHENPROCOUMON
     Indication: Atrial fibrillation
     Dosage: END DATE: NOT ASKED
     Route: 065
     Dates: start: 20050710
  9. THEOPHYLLINE [Suspect]
     Active Substance: THEOPHYLLINE
     Indication: Chronic obstructive pulmonary disease
     Dosage: ROUTE: INTRAVENOUS. DOSAGE REGIMEN: 3-0-0, 1-0-0, UNIT DOSE: 200 MG, FREQUENCY TIME- 1 DAY, DURATION
     Route: 042
     Dates: start: 20050627, end: 20050630
  10. THEOPHYLLINE [Suspect]
     Active Substance: THEOPHYLLINE
     Dosage: ROUTE: INTRAVENOUS, UNIT DOSE: 200 MG, FREQUENCY TIME- 1 DAY, DURATION-1 DAYS
     Route: 042
     Dates: start: 20050718, end: 20050718
  11. THEOPHYLLINE [Suspect]
     Active Substance: THEOPHYLLINE
     Dosage: 600 MILLIGRAM DAILY; ROUTE: ORAL, DOSAGE REGIMEN:1-0-0, DURATION 6 DAYS
     Route: 048
     Dates: start: 20050704, end: 20050709
  12. THEOPHYLLINE [Suspect]
     Active Substance: THEOPHYLLINE
     Dosage: ROUTE: INTRAVENOUS, UNIT DOSE: 200 MG, FREQUENCY TIME- 1 DAY, DURATION-1 DAYS
     Route: 042
     Dates: start: 20050721, end: 20050721
  13. PREDNISOLONE [Suspect]
     Active Substance: PREDNISOLONE
     Indication: Chronic obstructive pulmonary disease
     Dosage: DOSAGE REGIMEN: 50 MG 0-0, 280 MG-0-0, 20 MG-0-0, 5 MG 1-2-3., UNIT DOSE: 280 MG, FREQUENCY TIME- 1
     Route: 065
     Dates: start: 20050630, end: 20050705
  14. PREDNISOLONE [Suspect]
     Active Substance: PREDNISOLONE
     Dosage: UNIT DOSE: 80 MG, FREQUENCY TIME- 1 DAY, DURATION-9 DAYS
     Route: 065
     Dates: start: 20050707, end: 20050715
  15. PREDNISOLONE [Suspect]
     Active Substance: PREDNISOLONE
     Dosage: 5 MG, UNK, END DATE: NOT ASKED
     Route: 065
     Dates: start: 20050719
  16. PREDNISOLONE [Suspect]
     Active Substance: PREDNISOLONE
     Indication: Chronic obstructive pulmonary disease
     Dosage: 50 MILLIGRAM DAILY; 50 MG, QD, DURATION 8 DAYS
     Route: 065
  17. PREDNISOLONE [Suspect]
     Active Substance: PREDNISOLONE
     Dosage: 20 MILLIGRAM DAILY; DURATION-8 DAYS
     Route: 065
     Dates: start: 20050628, end: 20050705
  18. PREDNISOLONE [Suspect]
     Active Substance: PREDNISOLONE
     Dosage: 100 MILLIGRAM DAILY; 100 MG, QD, DURATION-1 DAYS
     Route: 065
  19. PREDNISOLONE [Suspect]
     Active Substance: PREDNISOLONE
     Dosage: 15 MILLIGRAM DAILY; 15 MG, QD, DURATION 3 DAYS
     Route: 065
  20. FORADIL [Suspect]
     Active Substance: FORMOTEROL FUMARATE
     Indication: Chronic obstructive pulmonary disease
     Dosage: 2 DOSAGE FORMS DAILY; DAILY DOSE: 2 DF DOSAGE FORM EVERY DAY, DURATION-20 DAYS
     Route: 065
     Dates: start: 20050629, end: 20050718
  21. FORADIL [Suspect]
     Active Substance: FORMOTEROL FUMARATE
     Dosage: 2 DOSAGE FORMS DAILY; 2 DF, QD, DURATION 20 DAYS
     Route: 065
  22. PREDNISOLONE [Suspect]
     Active Substance: PREDNISOLONE
     Indication: Chronic obstructive pulmonary disease
     Dosage: 15 MILLIGRAM DAILY; DOSAGE REGIMEN: 1-0-0, 100 MG 1-0-0, DURATION-3 DAYS
     Route: 065
     Dates: start: 20050716, end: 20050718
  23. PREDNISOLONE [Suspect]
     Active Substance: PREDNISOLONE
     Indication: Chronic obstructive pulmonary disease
     Dosage: 15 MG, DURATION-3 DAYS
     Route: 065
     Dates: start: 20050716, end: 20050718
  24. PREDNISOLONE [Suspect]
     Active Substance: PREDNISOLONE
     Dosage: 15 MG, FREQUENCY 1 DAY
     Route: 065
     Dates: start: 20050721, end: 20050721
  25. CLONIDINE [Suspect]
     Active Substance: CLONIDINE
     Indication: Alcohol withdrawal syndrome
     Dosage: 1.5 MILLIGRAM DAILY; 1.5 MG, QD, DURATION 2 DAYS
     Route: 065
     Dates: start: 20050703, end: 20050704
  26. CLONIDINE [Suspect]
     Active Substance: CLONIDINE
     Indication: Alcohol withdrawal syndrome
     Dosage: 1.5 MILLIGRAM DAILY; DOSAGE REGIMEN: 1-0-0, DURATION 3 DAYS
     Route: 065
     Dates: start: 20050628, end: 20050630
  27. MOXIFLOXACIN HYDROCHLORIDE [Suspect]
     Active Substance: MOXIFLOXACIN HYDROCHLORIDE
     Indication: Infective exacerbation of chronic obstructive airways disease
     Dosage: 400 MILLIGRAM DAILY; DOSAGE REGIMEN: 1-0-0,400 MG, QD, DURATION-7 DAYS
     Route: 065
     Dates: start: 20050627, end: 20050703
  28. CLOMETHIAZOLE [Suspect]
     Active Substance: CLOMETHIAZOLE
     Indication: Alcohol withdrawal syndrome
     Dosage: 6 DOSAGE FORMS DAILY; DOSAGE REGIMEN: 2-2-2,2 DF, TID, UNIT DOSE: 6 DF, FREQUENCY TIME- 1 DAY, DURAT
     Route: 065
     Dates: start: 20050630, end: 20050703
  29. CLORAZEPATE DIPOTASSIUM [Suspect]
     Active Substance: CLORAZEPATE DIPOTASSIUM
     Indication: Sedation
     Dosage: 10 MILLIGRAM DAILY; 10 MG, HS, FREQUENCY TIME- 1 DAY, DURATION-6 DAYS
     Route: 065
  30. CLORAZEPATE DIPOTASSIUM [Suspect]
     Active Substance: CLORAZEPATE DIPOTASSIUM
     Dosage: DOSAGE REGIMEN: 1-1-1-2, UNIT DOSE: 5 MG, DURATION-6DAYS
     Route: 065
     Dates: start: 20050627, end: 20050702
  31. CLORAZEPATE DIPOTASSIUM [Suspect]
     Active Substance: CLORAZEPATE DIPOTASSIUM
     Dosage: 10 MILLIGRAM DAILY; 10 MG, QD, DURATION-1 DAYS
     Route: 065
     Dates: start: 20050705, end: 20050705
  32. BEROTEC [Suspect]
     Active Substance: FENOTEROL HYDROBROMIDE
     Indication: Chronic obstructive pulmonary disease
     Dosage: DOSAGE REGIMEN: 2-3X/WO, UNIT DOSE: 6 DF, FREQUENCY TIME- 1 WEEK, END DATE: NOT ASKED
     Route: 065
     Dates: start: 20040601
  33. BEROTEC [Suspect]
     Active Substance: FENOTEROL HYDROBROMIDE
     Dosage: UNK, TIW, FREQUENCY TIME- 1 WEEK
     Route: 065
  34. PANTOZOL [Suspect]
     Active Substance: PANTOPRAZOLE SODIUM
     Indication: Prophylaxis
     Dosage: 40 MILLIGRAM DAILY; DAILY DOSE: 40 MG MILLIGRAM(S) EVERY DAY, DURATION 16 DAYS
     Route: 065
     Dates: start: 20050703, end: 20050718
  35. PANTOZOL [Suspect]
     Active Substance: PANTOPRAZOLE SODIUM
     Indication: Prophylaxis against gastrointestinal ulcer
     Dosage: 40 MILLIGRAM DAILY; DAILY DOSE: 40 MG MILLIGRAM(S) EVERY DAY, DURATION 2 DAYS
     Route: 065
     Dates: start: 20050629, end: 20050630
  36. NITROGLYCERIN [Suspect]
     Active Substance: NITROGLYCERIN
     Indication: Hypertension
     Dosage: DOSAGE REGIMEN: 0-0, UNIT DOSE: 50 MG, DURATION-1 DAYS
     Route: 065
     Dates: start: 20050702, end: 20050702
  37. MINERALS\VITAMINS [Suspect]
     Active Substance: MINERALS\VITAMINS
     Indication: Osteoporosis
     Dosage: 2000 MILLIGRAM DAILY; DOSAGE REGIMEN: 1-0-1. DRUG NAME: CA-MINERALS., DURATION-4 DAYS
     Route: 065
     Dates: start: 20050715, end: 20050718
  38. DIGITOXIN [Suspect]
     Active Substance: DIGITOXIN
     Indication: Coronary artery disease
     Dosage: .1 MILLIGRAM DAILY; DAILY DOSE: 0.1 MG MILLIGRAM(S) EVERY DAY, END DATE: NOT ASKED
     Route: 065
     Dates: start: 20050708
  39. OMEPRAZOLE [Suspect]
     Active Substance: OMEPRAZOLE
     Indication: Prophylaxis
     Dosage: 20 MILLIGRAM DAILY; 0-0-1, END DATE: NOT ASKED
     Route: 065
     Dates: start: 20050719
  40. FLUTICASONE PROPIONATE\SALMETEROL XINAFOATE [Suspect]
     Active Substance: FLUTICASONE PROPIONATE\SALMETEROL XINAFOATE
     Indication: Chronic obstructive pulmonary disease
     Route: 065
  41. FLUTICASONE PROPIONATE\SALMETEROL XINAFOATE [Suspect]
     Active Substance: FLUTICASONE PROPIONATE\SALMETEROL XINAFOATE
     Dosage: DOSAGE REGIMEN: 1-0-1, 2 DF, END DATE: NOT ASKED
     Route: 065
     Dates: start: 20050718
  42. SPIRIVA [Suspect]
     Active Substance: TIOTROPIUM BROMIDE MONOHYDRATE
     Indication: Chronic obstructive pulmonary disease
     Dosage: 1 DOSAGE FORMS DAILY; 1 DF, QD,
     Route: 065
  43. SPIRIVA [Suspect]
     Active Substance: TIOTROPIUM BROMIDE MONOHYDRATE
     Dosage: 1 DOSAGE FORMS DAILY; DOSAGE REGIMEN: 1-0-, END DATE: NOT ASKED
     Route: 065
     Dates: start: 20040601
  44. CHOLECALCIFEROL [Suspect]
     Active Substance: CHOLECALCIFEROL
     Indication: Osteoporosis
     Dosage: 1000 IU (INTERNATIONAL UNIT) DAILY; DOSE: 1000 IE. DOSAGE REGIMEN: 1-0-0
     Route: 065
     Dates: start: 20050718, end: 20050718
  45. CHOLECALCIFEROL [Suspect]
     Active Substance: CHOLECALCIFEROL
     Indication: Osteoporosis
     Dosage: 1000 IU, FREQUENCY TIME- 1 DAY, DURATION-1 DAY
     Route: 065
     Dates: start: 20050717, end: 20050717
  46. INSULIN NOS [Suspect]
     Active Substance: INSULIN NOS
     Indication: Product used for unknown indication
     Dosage: DRUG NAME: ALTINSULIN. INDICATION REPORTED: BLOOD GLUCOSE REGULATION
     Route: 065
     Dates: start: 20050703, end: 20050703
  47. BECLOMETHASONE DIPROPIONATE [Suspect]
     Active Substance: BECLOMETHASONE DIPROPIONATE
     Indication: Chronic obstructive pulmonary disease
     Dosage: 2 DOSAGE FORMS DAILY; DAILY DOSE: 2 DF DOSAGE FORM EVERY DAY, DURATION 19 DAYS
     Route: 065
     Dates: start: 20050627, end: 20050715
  48. BECLOMETHASONE DIPROPIONATE [Suspect]
     Active Substance: BECLOMETHASONE DIPROPIONATE
     Dosage: 2 DOSAGE FORMS DAILY; 2 DF, QD,  DURATION 19 DAYS
     Route: 065
  49. HYDROCHLOROTHIAZIDE\RAMIPRIL [Suspect]
     Active Substance: HYDROCHLOROTHIAZIDE\RAMIPRIL
     Indication: Cardiovascular disorder
     Dosage: 1 DOSAGE FORMS DAILY; DAILY DOSE: 1 DF DOSAGE FORM EVERY DAY, END DATE: NOT ASKED
     Route: 065
     Dates: start: 20050703
  50. HYDROCHLOROTHIAZIDE\RAMIPRIL [Suspect]
     Active Substance: HYDROCHLOROTHIAZIDE\RAMIPRIL
     Indication: Cardiovascular disorder
     Dosage: 1 DOSAGE FORMS DAILY; DOSAGE REGIMEN: 5/25 1-0-0, END DATE: NOT ASKED
     Route: 065
     Dates: start: 20050703
  51. PREDNISONE [Suspect]
     Active Substance: PREDNISONE
     Indication: Product used for unknown indication
     Dosage: 100 MILLIGRAM DAILY; 100 MG, QD, DURATION- 1 DAY
     Route: 065
  52. NORVASC [Suspect]
     Active Substance: AMLODIPINE BESYLATE
     Indication: Cardiovascular disorder
     Dosage: 5 MILLIGRAM DAILY; DOSAGE REGIMEN: 1-0-0, DURATION- 6 DAYS
     Route: 065
     Dates: start: 20050704, end: 20050709
  53. BRICANYL [Suspect]
     Active Substance: TERBUTALINE SULFATE
     Indication: Dyspnoea
     Dosage: DOSAGE REGIMEN: 1/2-0-1/, 2 DF, DURATION- 13 DAYS, DOSE REPORTED AS 0.5 DF
     Route: 065
     Dates: start: 20050627, end: 20050709
  54. CALCIUM CARBONATE\CHOLECALCIFEROL [Suspect]
     Active Substance: CALCIUM CARBONATE\CHOLECALCIFEROL
     Indication: Osteoporosis
     Dosage: DOSAGE REGIMEN: 1-0-1, : END DATE: NOT ASKED
     Route: 065
     Dates: start: 20050718
  55. CALCIUM CARBONATE\CHOLECALCIFEROL [Suspect]
     Active Substance: CALCIUM CARBONATE\CHOLECALCIFEROL
     Dosage: END DATE: NOT ASKED , 2 DF
     Dates: start: 20050719
  56. CITRIC ACID MONOHYDRATE\POTASSIUM BICARBONATE\POTASSIUM CITRATE [Suspect]
     Active Substance: CITRIC ACID MONOHYDRATE\POTASSIUM BICARBONATE\POTASSIUM CITRATE
     Indication: Hypokalaemia
     Dosage: 1 DOSAGE FORMS DAILY; DOSAGE REGIMEN: 1-0-0, DURATION 10 DAYS
     Route: 065
     Dates: start: 20050704, end: 20050713
  57. MARCUMAR [Suspect]
     Active Substance: PHENPROCOUMON
     Indication: Atrial fibrillation
     Dosage: ACCORDING INR, END DATE: NOT ASKED
     Route: 065
     Dates: start: 20050710
  58. VERAPAMIL HYDROCHLORIDE [Suspect]
     Active Substance: VERAPAMIL HYDROCHLORIDE
     Indication: Atrial fibrillation
     Dosage: DOSAGE REGIMEN: 1-0-0-0, 1-1-0-1, 240 MG, END DATE: NOT ASKED
     Route: 065
     Dates: start: 20050718
  59. ISOPTIN [Suspect]
     Active Substance: VERAPAMIL HYDROCHLORIDE
     Indication: Atrial fibrillation
     Dosage: DOSAGE REGIMEN: 0-0-0-1, 1-1-0-0, UNIT DOSE 80 MG, END DATE: NOT ASKED
     Route: 065
     Dates: start: 20050709
  60. HALOPERIDOL [Concomitant]
     Active Substance: HALOPERIDOL
     Indication: Sedation
     Dosage: 10 GTT DAILY; DRUG NAME: HALOPERIDOL TROPFEN. DOSAGE REGIMEN: 10-0-0, UNIT DOSE: 10 GT, DURATION-2 D
     Dates: start: 20050629, end: 20050630
  61. HALOPERIDOL [Concomitant]
     Active Substance: HALOPERIDOL
     Indication: Sedation
     Dosage: 10 GTT DAILY; 10 GTT, QD, DURATION-1 DAYS
     Dates: start: 20050703
  62. ring solution [Concomitant]
     Indication: Unevaluable event
     Dosage: 1000 ML DAILY; DRUG NAME: RINGER LSG. DOSAGE REGIMEN: 1-0-0, UNIT DOSE: 1000 ML, FREQUENCY TIME- 1 D
     Dates: start: 20050627, end: 20050703
  63. FRUCTOSE\INSULIN BEEF [Concomitant]
     Active Substance: FRUCTOSE\INSULIN BEEF
     Indication: Product used for unknown indication
     Dosage: DURATION 1 DAY
     Dates: start: 20050703, end: 20050703
  64. RAMIPRIL [Concomitant]
     Active Substance: RAMIPRIL
     Indication: Cardiovascular disorder
     Dosage: 1 DOSAGE FORMS DAILY; DOSAGE REGIMEN: 1-0-0, DURATION 3 DAYS
     Dates: start: 20050630, end: 20050702
  65. RAMIPRIL [Concomitant]
     Active Substance: RAMIPRIL
     Dosage: DURATION 3 DAYS
     Dates: start: 20050630, end: 20050702

REACTIONS (6)
  - Pyrexia [Unknown]
  - Stevens-Johnson syndrome [Recovered/Resolved]
  - Nikolsky^s sign [Unknown]
  - Pruritus [Unknown]
  - Blister [Unknown]
  - Toxic epidermal necrolysis [Recovered/Resolved]

NARRATIVE: CASE EVENT DATE: 20050721
